FAERS Safety Report 21919227 (Version 2)
Quarter: 2023Q1

REPORT INFORMATION
  Report Type: Spontaneous
  Country: IT (occurrence: IT)
  Receive Date: 20230127
  Receipt Date: 20230310
  Transmission Date: 20230418
  Serious: Yes (Other)
  Sender: FDA-Public Use
  Company Number: IT-MLMSERVICE-20230110-4030872-1

PATIENT
  Age: 17 Year
  Sex: Female

DRUGS (2)
  1. LACOSAMIDE [Interacting]
     Active Substance: LACOSAMIDE
     Indication: Idiopathic generalised epilepsy
  2. VALPROIC ACID [Interacting]
     Active Substance: VALPROIC ACID
     Indication: Idiopathic generalised epilepsy

REACTIONS (3)
  - Toxicity to various agents [Unknown]
  - Drug interaction [Unknown]
  - Encephalopathy [Recovered/Resolved]
